FAERS Safety Report 4530405-X (Version None)
Quarter: 2004Q4

REPORT INFORMATION
  Report Type: 
  Country: None (occurrence: None)
  Receive Date: 20041215
  Receipt Date: 20041201
  Transmission Date: 20050328
  Serious: Yes (Hospitalization)
  Sender: FDA-Public Use
  Company Number: 2004_000079

PATIENT
  Age: 37 Year
  Sex: Female

DRUGS (1)
  1. DEPOCYT [Suspect]
     Indication: METASTASES TO MENINGES
     Dosage: X1; INTRATHECAL
     Route: 037
     Dates: start: 20040915, end: 20040915

REACTIONS (12)
  - BLOOD DISORDER [None]
  - COGNITIVE DISORDER [None]
  - CONVULSION [None]
  - CSF BACTERIA IDENTIFIED [None]
  - DEPRESSED LEVEL OF CONSCIOUSNESS [None]
  - DIFFICULTY IN WALKING [None]
  - HALLUCINATION [None]
  - HEADACHE [None]
  - IMPLANT SITE INFECTION [None]
  - LEUKOPENIA [None]
  - POST PROCEDURAL COMPLICATION [None]
  - STAPHYLOCOCCAL INFECTION [None]
